FAERS Safety Report 15528931 (Version 1)
Quarter: 2018Q4

REPORT INFORMATION
  Report Type: Report from Study
  Country: US (occurrence: US)
  Receive Date: 20181018
  Receipt Date: 20181018
  Transmission Date: 20190205
  Serious: No
  Sender: FDA-Public Use
  Company Number: US-AMGEN-USASL2018130319

PATIENT
  Age: 52 Year
  Sex: Female

DRUGS (1)
  1. REPATHA [Suspect]
     Active Substance: EVOLOCUMAB
     Indication: HYPERCHOLESTEROLAEMIA
     Dosage: 140 MG, Q2WK
     Route: 065
     Dates: start: 201809

REACTIONS (15)
  - Syncope [Unknown]
  - Malaise [Unknown]
  - Feeling cold [Unknown]
  - Diarrhoea [Unknown]
  - Wrong technique in product usage process [Unknown]
  - Hypophagia [Unknown]
  - Head injury [Unknown]
  - Accidental exposure to product [Unknown]
  - Product storage error [Unknown]
  - Vomiting [Unknown]
  - Nausea [Unknown]
  - Injection site swelling [Unknown]
  - Injection site erythema [Unknown]
  - Sleep disorder due to a general medical condition [Unknown]
  - Underdose [Unknown]

NARRATIVE: CASE EVENT DATE: 2018
